FAERS Safety Report 9195759 (Version 1)
Quarter: 2013Q1

REPORT INFORMATION
  Report Type: Spontaneous
  Country: US (occurrence: None)
  Receive Date: 20130325
  Receipt Date: 20130325
  Transmission Date: 20140127
  Serious: No
  Sender: FDA-Public Use
  Company Number: None

PATIENT
  Sex: Female

DRUGS (2)
  1. BUPROPION [Suspect]
     Dosage: 1/AM
     Route: 048
     Dates: start: 20121006, end: 20121101
  2. BUPROPION [Suspect]
     Dosage: 1/AM
     Route: 048
     Dates: start: 201212, end: 201301

REACTIONS (6)
  - Anxiety [None]
  - Nervousness [None]
  - Tremor [None]
  - Anger [None]
  - Apathy [None]
  - Product substitution issue [None]
